FAERS Safety Report 6161050-0 (Version None)
Quarter: 2009Q2

REPORT INFORMATION
  Report Type: 
  Country: None (occurrence: None)
  Receive Date: 20090420
  Receipt Date: 20090408
  Transmission Date: 20091009
  Serious: Yes (Disabling)
  Sender: FDA-Public Use
  Company Number: GB-PFIZER INC-2009194795

PATIENT

DRUGS (3)
  1. DOXYCYCLINE HYCLATE [Suspect]
     Indication: FOREIGN BODY TRAUMA
     Dosage: 100 MG, UNK
     Route: 048
     Dates: start: 20090315, end: 20090319
  2. TRANEXAMIC ACID [Suspect]
     Indication: VAGINAL DISCHARGE
     Dosage: 500 MG, UNK
     Route: 048
     Dates: start: 20090315, end: 20090319
  3. ANTIBIOTICS [Concomitant]
     Indication: ABSCESS
     Route: 048

REACTIONS (3)
  - HYPOAESTHESIA FACIAL [None]
  - SWELLING FACE [None]
  - VISUAL IMPAIRMENT [None]
